FAERS Safety Report 15010761 (Version 1)
Quarter: 2018Q2

REPORT INFORMATION
  Report Type: Spontaneous
  Country: US (occurrence: US)
  Receive Date: 20180529
  Receipt Date: 20180529
  Transmission Date: 20180711
  Serious: Yes (Death)
  Sender: FDA-Public Use
  Company Number: None

PATIENT
  Age: 57 Year
  Sex: Male

DRUGS (10)
  1. FIBER [Concomitant]
     Active Substance: PSYLLIUM HUSK
  2. LASIX [Concomitant]
     Active Substance: FUROSEMIDE
  3. VIAGRA [Concomitant]
     Active Substance: SILDENAFIL CITRATE
  4. FLONASE ALLERGY RELIEF [Concomitant]
     Active Substance: FLUTICASONE PROPIONATE
  5. CETIRIZINE HCL [Concomitant]
     Active Substance: CETIRIZINE HYDROCHLORIDE
  6. SENNA LAXATIVE [Concomitant]
     Active Substance: SENNOSIDES
  7. XIFAXAN [Suspect]
     Active Substance: RIFAXIMIN
     Indication: HEPATIC FAILURE
     Route: 048
     Dates: start: 20171219
  8. SPIRONOLACTONE. [Concomitant]
     Active Substance: SPIRONOLACTONE
  9. MULTIPLE VITAMIN [Concomitant]
     Active Substance: VITAMINS
  10. NADOLOL. [Concomitant]
     Active Substance: NADOLOL

REACTIONS (1)
  - Death [None]

NARRATIVE: CASE EVENT DATE: 20180524
